FAERS Safety Report 12497368 (Version 1)
Quarter: 2016Q2

REPORT INFORMATION
  Report Type: Spontaneous
  Country: US (occurrence: US)
  Receive Date: 20160624
  Receipt Date: 20160624
  Transmission Date: 20160815
  Serious: Yes (Other)
  Sender: FDA-Public Use
  Company Number: US-MYLANLABS-2016M1026194

PATIENT

DRUGS (4)
  1. PAROXETINE. [Suspect]
     Active Substance: PAROXETINE
     Dosage: 40MG
     Route: 065
  2. OXAZEPAM. [Interacting]
     Active Substance: OXAZEPAM
     Indication: EMOTIONAL DISTRESS
     Dosage: 30 MG/DAY TO BE TAKEN IN DIVIDED DOSES
     Route: 065
  3. PAROXETINE. [Suspect]
     Active Substance: PAROXETINE
     Indication: EMOTIONAL DISTRESS
     Dosage: 20 MG/DAY, HE TOOK IT SPORADICALLY, WHEN HE FELT THAT HE NEEDED SOMETHING FOR HIS NERVES
     Route: 065
  4. BUDESONIDE W/FORMOTEROL [Interacting]
     Active Substance: BUDESONIDE\FORMOTEROL
     Indication: ASTHMA
     Route: 055

REACTIONS (5)
  - Drug interaction [Unknown]
  - Alcohol interaction [Unknown]
  - Homicide [Unknown]
  - Akathisia [Unknown]
  - Physical assault [Unknown]
